FAERS Safety Report 5094380-4 (Version None)
Quarter: 2006Q3

REPORT INFORMATION
  Report Type: 
  Country: None (occurrence: None)
  Receive Date: 20060831
  Receipt Date: 20060828
  Transmission Date: 20061208
  Serious: Yes (Hospitalization, Disabling)
  Sender: FDA-Public Use
  Company Number: US-BOEHRINGER INGELHEIM PHARMACEUTICALS, INC.-2006-BP-09997BP

PATIENT
  Sex: Male

DRUGS (5)
  1. FLOMAX [Suspect]
     Route: 048
     Dates: start: 20050101
  2. TOPROL-XL [Concomitant]
     Route: 048
  3. NORVASC [Concomitant]
     Route: 048
  4. HYZAAR [Concomitant]
     Route: 048
  5. BLOOD PRESSURE MEDS [Concomitant]
     Indication: BLOOD PRESSURE

REACTIONS (5)
  - BLOOD PRESSURE ORTHOSTATIC DECREASED [None]
  - FALL [None]
  - INTERVERTEBRAL DISC PROTRUSION [None]
  - LOSS OF CONSCIOUSNESS [None]
  - SYNCOPE [None]
